FAERS Safety Report 14136239 (Version 2)
Quarter: 2018Q1

REPORT INFORMATION
  Report Type: Report from Study
  Country: US (occurrence: US)
  Receive Date: 20171026
  Receipt Date: 20180123
  Transmission Date: 20180508
  Serious: No
  Sender: FDA-Public Use
  Company Number: US-AMGEN-USASL2017130955

PATIENT
  Age: 50 Year
  Sex: Female

DRUGS (2)
  1. PRALUENT [Concomitant]
     Active Substance: ALIROCUMAB
  2. REPATHA [Suspect]
     Active Substance: EVOLOCUMAB
     Indication: BLOOD CHOLESTEROL INCREASED
     Dosage: 140 MG, Q2WK
     Route: 065
     Dates: start: 201707

REACTIONS (6)
  - Hyperhidrosis [Unknown]
  - Muscle spasms [Recovered/Resolved]
  - Arthralgia [Unknown]
  - Dry mouth [Not Recovered/Not Resolved]
  - Blood cholesterol increased [Unknown]
  - Back pain [Recovered/Resolved]

NARRATIVE: CASE EVENT DATE: 2017
